FAERS Safety Report 6719017-7 (Version None)
Quarter: 2010Q2

REPORT INFORMATION
  Report Type: 
  Country: None (occurrence: None)
  Receive Date: 20100511
  Receipt Date: 20100427
  Transmission Date: 20101027
  Serious: Yes (Other)
  Sender: FDA-Public Use
  Company Number: GB-RANBAXY-2010RR-33629

PATIENT
  Age: 77 Year
  Sex: Male

DRUGS (5)
  1. CIPROFLOXACIN [Suspect]
     Indication: URINARY TRACT INFECTION PSEUDOMONAL
     Dosage: 500 MG, BID
     Route: 048
     Dates: start: 20100409, end: 20100414
  2. NITROFURANTOIN [Concomitant]
     Indication: URINARY TRACT INFECTION
     Dosage: 100 G, UNK
     Route: 048
  3. ORAMORPH SR [Concomitant]
     Indication: PAIN
     Dosage: UNK
     Route: 048
  4. TRAZODONE [Concomitant]
     Indication: ANXIETY
     Dosage: 150 MG, UNK
     Route: 048
  5. TRAZODONE [Concomitant]
     Indication: INSOMNIA

REACTIONS (4)
  - HALLUCINATION [None]
  - HYPERHIDROSIS [None]
  - RENAL FAILURE ACUTE [None]
  - URINE OUTPUT DECREASED [None]
